FAERS Safety Report 7931579-0 (Version None)
Quarter: 2011Q4

REPORT INFORMATION
  Report Type: 
  Country: None (occurrence: None)
  Receive Date: 20111121
  Receipt Date: 20111116
  Transmission Date: 20120403
  Serious: Yes (Other)
  Sender: FDA-Public Use
  Company Number: US-PFIZER INC-2011281305

PATIENT
  Sex: Female
  Weight: 56.236 kg

DRUGS (2)
  1. PREPARATION H [Suspect]
     Indication: ANORECTAL DISCOMFORT
     Dosage: UNK
     Dates: start: 20111111, end: 20111115
  2. MICARDIS [Concomitant]
     Indication: HYPERTENSION
     Dosage: 80 MG, DAILY

REACTIONS (2)
  - ANORECTAL DISCOMFORT [None]
  - RECTAL HAEMORRHAGE [None]
